FAERS Safety Report 15736927 (Version 1)
Quarter: 2018Q4

REPORT INFORMATION
  Report Type: Spontaneous
  Country: CA (occurrence: CA)
  Receive Date: 20181218
  Receipt Date: 20181218
  Transmission Date: 20190205
  Serious: Yes (Other)
  Sender: FDA-Public Use
  Company Number: CA-ACTELION-A-NJ2017-151060

PATIENT
  Age: 31 Year
  Sex: Female

DRUGS (5)
  1. TAPAZOLE [Concomitant]
     Active Substance: METHIMAZOLE
  2. WARFARIN [Concomitant]
     Active Substance: WARFARIN
  3. SILDENAFIL. [Concomitant]
     Active Substance: SILDENAFIL
  4. TECTA [Concomitant]
     Active Substance: PANTOPRAZOLE MAGNESIUM
  5. CARIPUL [Suspect]
     Active Substance: EPOPROSTENOL
     Indication: PULMONARY ARTERIAL HYPERTENSION
     Dosage: 30000 NG/ML, UNK
     Route: 042
     Dates: start: 20150713

REACTIONS (4)
  - Appendicectomy [Unknown]
  - Back pain [Unknown]
  - Abdominal pain upper [Unknown]
  - Cholelithiasis [Unknown]

NARRATIVE: CASE EVENT DATE: 20170304
